FAERS Safety Report 6009555-7 (Version None)
Quarter: 2008Q4

REPORT INFORMATION
  Report Type: 
  Country: None (occurrence: None)
  Receive Date: 20081217
  Receipt Date: 20081014
  Transmission Date: 20090506
  Serious: No
  Sender: FDA-Public Use
  Company Number: US-BAYER-200836117NA

PATIENT
  Age: 35 Year
  Sex: Female
  Weight: 72 kg

DRUGS (2)
  1. YAZ [Suspect]
     Indication: MENORRHAGIA
     Dates: start: 20080901
  2. YAZ [Suspect]
     Dates: start: 20081012

REACTIONS (2)
  - DRY EYE [None]
  - NO ADVERSE EVENT [None]
